FAERS Safety Report 10006456 (Version 1)
Quarter: 2014Q1

REPORT INFORMATION
  Report Type: Spontaneous
  Country: US (occurrence: None)
  Receive Date: 20140312
  Receipt Date: 20140312
  Transmission Date: 20141002
  Serious: Yes (Life-Threatening)
  Sender: FDA-Public Use
  Company Number: None

PATIENT
  Age: 51 Year
  Sex: Female
  Weight: 74.84 kg

DRUGS (1)
  1. METHYLPREDNISOLONE [Suspect]
     Indication: EXTERNAL EAR INFLAMMATION
     Dosage: 6 1ST DAY, 5 2ND DAY, 4 3RD
     Route: 048
     Dates: start: 20140310, end: 20140310

REACTIONS (2)
  - Throat tightness [None]
  - Hypersensitivity [None]
